FAERS Safety Report 23251942 (Version 3)
Quarter: 2024Q3

REPORT INFORMATION
  Report Type: Report from Study
  Country: LT (occurrence: LT)
  Receive Date: 20231201
  Receipt Date: 20240807
  Transmission Date: 20241016
  Serious: Yes (Hospitalization)
  Sender: MYLAN
  Company Number: LT-JNJFOC-20231112562

PATIENT
  Age: 8 Decade
  Sex: Female
  Weight: 70 kg

DRUGS (29)
  1. AMBRISENTAN [Suspect]
     Active Substance: AMBRISENTAN
     Indication: Pulmonary arterial hypertension
     Dosage: 5
     Route: 048
     Dates: start: 20230905, end: 20231031
  2. AMBRISENTAN [Suspect]
     Active Substance: AMBRISENTAN
     Dosage: 10 MILLIGRAM
     Route: 048
     Dates: start: 20231031
  3. BOSENTAN [Suspect]
     Active Substance: BOSENTAN
     Indication: Pulmonary arterial hypertension
     Dosage: 125
     Route: 048
     Dates: start: 20221215, end: 20230209
  4. BOSENTAN [Suspect]
     Active Substance: BOSENTAN
     Dosage: 250
     Route: 048
     Dates: start: 20230209, end: 20230905
  5. SELEXIPAG [Suspect]
     Active Substance: SELEXIPAG
     Indication: Pulmonary arterial hypertension
     Dosage: 400 MICROGRAM
     Route: 048
     Dates: start: 20230411, end: 20230427
  6. SELEXIPAG [Suspect]
     Active Substance: SELEXIPAG
     Indication: Systemic scleroderma
     Dosage: 800 MICROGRAM
     Route: 048
     Dates: start: 20230427, end: 20230509
  7. SELEXIPAG [Suspect]
     Active Substance: SELEXIPAG
     Dosage: 1200 MICROGRAM
     Route: 048
     Dates: start: 20230509, end: 20230523
  8. SELEXIPAG [Suspect]
     Active Substance: SELEXIPAG
     Dosage: 1600 MICROGRAM
     Route: 048
     Dates: start: 20230523, end: 20230606
  9. SELEXIPAG [Suspect]
     Active Substance: SELEXIPAG
     Dosage: 2000 MICROGRAM
     Route: 048
     Dates: start: 20230606, end: 20230629
  10. SELEXIPAG [Suspect]
     Active Substance: SELEXIPAG
     Dosage: 2400 MICROGRAM
     Route: 048
     Dates: start: 20230629, end: 20230803
  11. SELEXIPAG [Suspect]
     Active Substance: SELEXIPAG
     Dosage: 2800 MICROGRAM
     Route: 048
     Dates: start: 20230803, end: 20230905
  12. SELEXIPAG [Suspect]
     Active Substance: SELEXIPAG
     Dosage: 1600 MICROGRAM
     Route: 048
     Dates: start: 20230905, end: 20230919
  13. SELEXIPAG [Suspect]
     Active Substance: SELEXIPAG
     Dosage: 3200 MICROGRAM
     Route: 048
     Dates: start: 20230919
  14. PERINDOPRIL [Concomitant]
     Active Substance: PERINDOPRIL
     Indication: Hypertension
     Dosage: UNK
     Route: 048
     Dates: start: 20220929, end: 20221026
  15. SPIRONOLACTONE [Concomitant]
     Active Substance: SPIRONOLACTONE
     Indication: Cardiac failure
     Dosage: UNK
     Route: 048
     Dates: start: 20210504, end: 20230321
  16. ZOLPIDEM [Concomitant]
     Active Substance: ZOLPIDEM TARTRATE
     Indication: Sleep disorder
     Dosage: UNK
     Route: 048
     Dates: start: 20220527, end: 20221221
  17. AMIODARONE [Concomitant]
     Active Substance: AMIODARONE
     Indication: Atrial flutter
     Dosage: UNK
     Route: 048
     Dates: start: 20220929, end: 20221028
  18. FERROUS SULFATE [Concomitant]
     Active Substance: FERROUS SULFATE
     Indication: Prophylaxis
     Dosage: UNK
     Route: 048
     Dates: start: 20230309, end: 20230607
  19. NIFEDIPINE [Concomitant]
     Active Substance: NIFEDIPINE
     Indication: Hypertension
     Dosage: UNK
     Route: 048
     Dates: start: 20210310, end: 20221031
  20. APIXABAN [Concomitant]
     Active Substance: APIXABAN
     Indication: Atrial flutter
     Dosage: UNK
     Route: 048
     Dates: start: 20221113
  21. SILDENAFIL [Concomitant]
     Active Substance: SILDENAFIL
     Indication: Pulmonary arterial hypertension
     Dosage: 60
     Route: 048
     Dates: start: 20221028
  22. ZOPICLONE [Concomitant]
     Active Substance: ZOPICLONE
     Indication: Sleep disorder
     Dosage: UNK
     Route: 048
     Dates: start: 20221221, end: 20230314
  23. TRIMETAZIDINE [Concomitant]
     Active Substance: TRIMETAZIDINE
     Indication: Angina pectoris
     Dosage: UNK
     Route: 048
     Dates: start: 20220310
  24. ESOMEPRAZOLE [Concomitant]
     Active Substance: ESOMEPRAZOLE
     Indication: Gastrooesophageal reflux disease
     Dosage: UNK
     Route: 048
     Dates: start: 20230317, end: 20230402
  25. NEBIVOLOL [Concomitant]
     Active Substance: NEBIVOLOL
     Indication: Atrial flutter
     Dosage: UNK
     Route: 048
     Dates: start: 20220929, end: 20221026
  26. TORSEMIDE [Concomitant]
     Active Substance: TORSEMIDE
     Indication: Cardiac failure
     Dosage: UNK
     Route: 048
     Dates: start: 20220708
  27. BISOPROLOL [Concomitant]
     Active Substance: BISOPROLOL\BISOPROLOL FUMARATE
     Indication: Atrial flutter
     Dosage: UNK
     Route: 048
     Dates: start: 20221116, end: 20231011
  28. QUETIAPINE [Concomitant]
     Active Substance: QUETIAPINE
     Indication: Sleep disorder
     Dosage: UNK
     Route: 048
     Dates: start: 20230605
  29. METOPROLOL [Concomitant]
     Active Substance: METOPROLOL
     Indication: Atrial flutter
     Dosage: UNK
     Route: 048
     Dates: start: 20231011

REACTIONS (5)
  - Hypokalaemia [Recovering/Resolving]
  - Pneumonia [Recovering/Resolving]
  - Anaemia [Not Recovered/Not Resolved]
  - Cardiac failure [Recovering/Resolving]
  - Hepatic function abnormal [Recovered/Resolved]

NARRATIVE: CASE EVENT DATE: 20230905
